FAERS Safety Report 13030583 (Version 5)
Quarter: 2017Q2

REPORT INFORMATION
  Report Type: Report from Study
  Country: US (occurrence: US)
  Receive Date: 20161215
  Receipt Date: 20170428
  Transmission Date: 20170830
  Serious: Yes (Hospitalization)
  Sender: FDA-Public Use
  Company Number: US-JNJFOC-20161207479

PATIENT
  Sex: Female
  Weight: 66.23 kg

DRUGS (7)
  1. REMICADE [Suspect]
     Active Substance: INFLIXIMAB
     Indication: CROHN^S DISEASE
     Route: 042
     Dates: start: 20160831
  2. REMICADE [Suspect]
     Active Substance: INFLIXIMAB
     Indication: CROHN^S DISEASE
     Route: 042
     Dates: start: 2005
  3. LISINOPRIL. [Suspect]
     Active Substance: LISINOPRIL
     Indication: PRODUCT USED FOR UNKNOWN INDICATION
     Route: 065
  4. OMEPRAZOLE. [Concomitant]
     Active Substance: OMEPRAZOLE
     Indication: GASTROOESOPHAGEAL REFLUX DISEASE
     Route: 065
     Dates: start: 200408
  5. VIT B 12 [Concomitant]
     Route: 065
  6. HYDROCHLOROTHIAZIDE. [Concomitant]
     Active Substance: HYDROCHLOROTHIAZIDE
     Route: 048
  7. REMICADE [Suspect]
     Active Substance: INFLIXIMAB
     Indication: CROHN^S DISEASE
     Route: 042
     Dates: start: 201505

REACTIONS (17)
  - Adenocarcinoma [Unknown]
  - Lactose intolerance [Unknown]
  - Abdominal adhesions [Unknown]
  - Metastases to lymph nodes [Unknown]
  - Weight decreased [Unknown]
  - Hypoacusis [Unknown]
  - Gastrointestinal disorder [Unknown]
  - Joint swelling [Unknown]
  - Drug ineffective [Unknown]
  - Gastrointestinal carcinoma [Unknown]
  - Infected fistula [Unknown]
  - Colitis [Unknown]
  - Intestinal scarring [Unknown]
  - Anal fistula [Unknown]
  - Anal fissure [Unknown]
  - Large intestine polyp [Unknown]
  - Fat intolerance [Unknown]

NARRATIVE: CASE EVENT DATE: 2005
